FAERS Safety Report 17389027 (Version 1)
Quarter: 2020Q1

REPORT INFORMATION
  Report Type: Spontaneous
  Country: US (occurrence: US)
  Receive Date: 20200123
  Receipt Date: 20200123
  Transmission Date: 20200409
  Serious: Yes (Hospitalization)
  Sender: FDA-Public Use
  Company Number: None

PATIENT
  Age: 63 Year
  Sex: Female

DRUGS (4)
  1. ANASTROZOLE. [Concomitant]
     Active Substance: ANASTROZOLE
  2. CEPHALEXIN. [Concomitant]
     Active Substance: CEPHALEXIN
  3. DIAZEPAN [Concomitant]
     Active Substance: DIAZEPAM
  4. IBRANCE [Suspect]
     Active Substance: PALBOCICLIB
     Indication: BREAST CANCER FEMALE
     Dosage: ?          OTHER DOSE:1 CAP;OTHER FREQUENCY:QX21D;?
     Route: 048

REACTIONS (2)
  - Cerebral cyst [None]
  - Post procedural infection [None]

NARRATIVE: CASE EVENT DATE: 20191104
